FAERS Safety Report 5281817-0 (Version None)
Quarter: 2007Q1

REPORT INFORMATION
  Report Type: 
  Country: None (occurrence: None)
  Receive Date: 20070326
  Receipt Date: 20070317
  Transmission Date: 20070707
  Serious: No
  Sender: FDA-Public Use
  Company Number: E3810-00725-SPO-AU

PATIENT
  Age: 14 Year
  Sex: Female

DRUGS (1)
  1. RABEPRAZOLE SODIUM [Suspect]
     Indication: GASTROOESOPHAGEAL REFLUX DISEASE
     Dosage: UNKNOWN, UNKNOWN, ORAL
     Route: 048

REACTIONS (2)
  - CONTUSION [None]
  - VAGINAL HAEMORRHAGE [None]
